FAERS Safety Report 5394455-6 (Version None)
Quarter: 2007Q3

REPORT INFORMATION
  Report Type: 
  Country: None (occurrence: None)
  Receive Date: 20070723
  Receipt Date: 20070524
  Transmission Date: 20080115
  Serious: No
  Sender: FDA-Public Use
  Company Number: US-AMGEN-US226194

PATIENT
  Sex: Female

DRUGS (2)
  1. VECTIBIX [Suspect]
     Indication: COLORECTAL CANCER
     Route: 065
     Dates: start: 20070201
  2. MAGNESIUM SULFATE [Concomitant]
     Route: 065

REACTIONS (3)
  - BLOOD MAGNESIUM DECREASED [None]
  - ERYTHEMA [None]
  - WOUND DRAINAGE [None]
